FAERS Safety Report 4432065-5 (Version None)
Quarter: 2004Q3

REPORT INFORMATION
  Report Type: 
  Country: None (occurrence: None)
  Receive Date: 20040819
  Receipt Date: 20040802
  Transmission Date: 20050211
  Serious: Yes (Other)
  Sender: FDA-Public Use
  Company Number: B0342047B

PATIENT
  Sex: 0

DRUGS (5)
  1. RETROVIR [Suspect]
  2. EPIVIR [Suspect]
     Indication: HIV INFECTION
     Dosage: TRANSPLACENTARY
  3. RETROVIR [Suspect]
     Indication: HIV INFECTION
     Dosage: TRANSPLACENTARY
  4. RITONAVIR (FORMULATION UNKNOWN) (RITONAVIR) [Suspect]
     Indication: HIV INFECTION
     Dosage: TRANSPLACENTARY
  5. SAQUINAVIR (FORMULATION UNKNOWN) (SAQUINAVIE) [Suspect]
     Indication: HIV INFECTION
     Dosage: TRANSPLACENTARY

REACTIONS (2)
  - DRUG EXPOSURE DURING PREGNANCY [None]
  - PREMATURE BABY [None]
